FAERS Safety Report 24716718 (Version 1)
Quarter: 2024Q4

REPORT INFORMATION
  Report Type: Spontaneous
  Country: US (occurrence: None)
  Receive Date: 20241209
  Receipt Date: 20241209
  Transmission Date: 20250115
  Serious: Yes (Death)
  Sender: Public
  Company Number: None

PATIENT
  Age: 59 Year
  Sex: Male

DRUGS (1)
  1. XPHOZAH [Suspect]
     Active Substance: TENAPANOR HYDROCHLORIDE
     Indication: Hyperphosphataemia
     Dosage: FREQUENCY : TWICE A DAY;?
     Route: 048
     Dates: start: 20241016, end: 20241108

REACTIONS (1)
  - Death [None]

NARRATIVE: CASE EVENT DATE: 20241127
